FAERS Safety Report 24709294 (Version 2)
Quarter: 2024Q4

REPORT INFORMATION
  Report Type: Report from Study
  Country: US (occurrence: US)
  Receive Date: 20241208
  Receipt Date: 20241225
  Transmission Date: 20250115
  Serious: Yes (Other)
  Sender: ABBVIE
  Company Number: US-ABBVIE-6033860

PATIENT
  Age: 45 Year
  Sex: Female
  Weight: 99.79 kg

DRUGS (3)
  1. HUMIRA [Suspect]
     Active Substance: ADALIMUMAB
     Indication: Colitis ulcerative
     Dosage: CITRATE FREE, FORM STRENGTH- 40 MILLIGRAM, FREQUENCY TEXT- EVERY OTHER THURSDAY
     Route: 058
     Dates: start: 20240530
  2. METOPROLOL [Concomitant]
     Active Substance: METOPROLOL
     Indication: Blood pressure abnormal
  3. ROBAXIN [Concomitant]
     Active Substance: METHOCARBAMOL
     Indication: Muscle relaxant therapy

REACTIONS (3)
  - Intervertebral disc degeneration [Recovered/Resolved]
  - Pain [Not Recovered/Not Resolved]
  - Vertebral osteophyte [Recovered/Resolved]

NARRATIVE: CASE EVENT DATE: 20240101
